FAERS Safety Report 20939895 (Version 1)
Quarter: 2022Q2

REPORT INFORMATION
  Report Type: Report from Study
  Country: US (occurrence: US)
  Receive Date: 20220609
  Receipt Date: 20220609
  Transmission Date: 20220720
  Serious: Yes (Hospitalization, Other)
  Sender: FDA-Public Use
  Company Number: US-GILEAD-2022-0583696

PATIENT
  Age: 34 Year
  Sex: Male
  Weight: 116.3 kg

DRUGS (6)
  1. REMDESIVIR [Suspect]
     Active Substance: REMDESIVIR
     Indication: COVID-19
     Dosage: 100 MG, QD
     Route: 042
     Dates: start: 20210915, end: 20210918
  2. REMDESIVIR [Suspect]
     Active Substance: REMDESIVIR
     Dosage: UNK X1
     Route: 042
     Dates: start: 20210914, end: 20210914
  3. CYPROHEPTADINE [Suspect]
     Active Substance: CYPROHEPTADINE
     Indication: COVID-19
     Dosage: 8 MG, TID
     Route: 048
     Dates: start: 20210915, end: 20210923
  4. CISATRACURIUM [Concomitant]
     Active Substance: CISATRACURIUM
     Dosage: 17 MG, Q1HR
     Route: 042
     Dates: start: 20211123
  5. OXYGEN [Concomitant]
     Active Substance: OXYGEN
     Indication: Respiratory failure
     Dosage: 40 L/MIN
     Route: 045
  6. OXYGEN [Concomitant]
     Active Substance: OXYGEN
     Indication: COVID-19 pneumonia

REACTIONS (1)
  - Pneumothorax [Unknown]

NARRATIVE: CASE EVENT DATE: 20210929
